FAERS Safety Report 11733838 (Version 7)
Quarter: 2016Q3

REPORT INFORMATION
  Report Type: Report from Study
  Country: CA (occurrence: CA)
  Receive Date: 20151113
  Receipt Date: 20160708
  Transmission Date: 20161109
  Serious: Yes (Other)
  Sender: FDA-Public Use
  Company Number: CA-BRISTOL-MYERS SQUIBB COMPANY-BMS-2015-076194

PATIENT
  Sex: Female

DRUGS (1)
  1. ABATACEPT [Suspect]
     Active Substance: ABATACEPT
     Indication: RHEUMATOID ARTHRITIS
     Dosage: 1000 MG, Q4WK
     Route: 042
     Dates: start: 20080924

REACTIONS (9)
  - Eye operation [Unknown]
  - Sinusitis [Unknown]
  - Arthralgia [Unknown]
  - Oropharyngeal pain [Unknown]
  - Eye disorder [Unknown]
  - Urinary tract infection [Unknown]
  - Pulmonary congestion [Unknown]
  - Nasopharyngitis [Unknown]
  - Malaise [Unknown]
